FAERS Safety Report 5302913-5 (Version None)
Quarter: 2007Q2

REPORT INFORMATION
  Report Type: 
  Country: None (occurrence: None)
  Receive Date: 20070419
  Receipt Date: 20070419
  Transmission Date: 20071010
  Serious: Yes (Hospitalization)
  Sender: FDA-Public Use
  Company Number: None

PATIENT
  Sex: Male
  Weight: 96.9 kg

DRUGS (4)
  1. ESTRAMUSTINE [Suspect]
     Dosage: 420 MG
  2. VINBLASTINE SULFATE [Suspect]
     Dosage: 4 MG
  3. GLYBURIDE [Concomitant]
  4. NORVASC [Concomitant]

REACTIONS (2)
  - CENTRAL LINE INFECTION [None]
  - ENTEROBACTER INFECTION [None]
